FAERS Safety Report 4652466-X (Version None)
Quarter: 2005Q2

REPORT INFORMATION
  Report Type: 
  Country: None (occurrence: None)
  Receive Date: 20050504
  Receipt Date: 20050425
  Transmission Date: 20051028
  Serious: Yes (Life-Threatening)
  Sender: FDA-Public Use
  Company Number: JP-BRISTOL-MYERS SQUIBB COMPANY-12947446

PATIENT
  Age: 62 Year
  Sex: Female

DRUGS (7)
  1. PARAPLATIN [Suspect]
     Indication: ADENOID CYSTIC CARCINOMA
     Route: 041
     Dates: start: 19990510, end: 20040213
  2. TAXOTERE [Concomitant]
     Route: 042
  3. ADRIAMYCIN [Concomitant]
     Route: 042
  4. THERARUBICIN [Concomitant]
     Route: 042
  5. ENDOXAN [Concomitant]
     Route: 042
  6. NEDAPLATIN [Concomitant]
     Route: 042
  7. TAXOL [Concomitant]
     Route: 042

REACTIONS (2)
  - MYELODYSPLASTIC SYNDROME [None]
  - NEOPLASM RECURRENCE [None]
